FAERS Safety Report 4855205-2 (Version None)
Quarter: 2005Q4

REPORT INFORMATION
  Report Type: 
  Country: None (occurrence: None)
  Receive Date: 20051215
  Receipt Date: 20051005
  Transmission Date: 20060501
  Serious: Yes (Hospitalization, Disabling)
  Sender: FDA-Public Use
  Company Number: US-MERCK-0510USA04007

PATIENT
  Age: 63 Year
  Sex: Female
  Weight: 82 kg

DRUGS (6)
  1. VIOXX [Suspect]
     Indication: PAIN
     Route: 048
     Dates: start: 20020101, end: 20040101
  2. IBUPROFEN [Concomitant]
     Route: 065
  3. CELEBREX [Concomitant]
     Route: 065
  4. SINGULAIR [Concomitant]
     Route: 065
  5. ALBUTEROL [Concomitant]
     Indication: ASTHMA
     Route: 065
  6. COMBIVENT [Concomitant]
     Route: 065

REACTIONS (7)
  - ACCIDENT AT WORK [None]
  - ARTHRALGIA [None]
  - ASTHMA [None]
  - CARDIOVASCULAR DISORDER [None]
  - CHRONIC OBSTRUCTIVE PULMONARY DISEASE [None]
  - MYOCARDIAL INFARCTION [None]
  - SHOULDER PAIN [None]
